FAERS Safety Report 6510559-6 (Version None)
Quarter: 2009Q4

REPORT INFORMATION
  Report Type: 
  Country: None (occurrence: None)
  Receive Date: 20091222
  Receipt Date: 20091027
  Transmission Date: 20100525
  Serious: No
  Sender: FDA-Public Use
  Company Number: US-ASTRAZENECA-2009SE22904

PATIENT
  Age: 92 Year
  Sex: Male
  Weight: 93 kg

DRUGS (3)
  1. CRESTOR [Suspect]
     Indication: BLOOD CHOLESTEROL INCREASED
     Route: 048
     Dates: start: 20091016, end: 20091025
  2. VERAPAMIL [Concomitant]
  3. LOSARTAN [Concomitant]

REACTIONS (1)
  - PAIN IN EXTREMITY [None]
